FAERS Safety Report 5516410-5 (Version None)
Quarter: 2007Q4

REPORT INFORMATION
  Report Type: 
  Country: None (occurrence: None)
  Receive Date: 20071114
  Receipt Date: 20070219
  Transmission Date: 20080405
  Serious: No
  Sender: FDA-Public Use
  Company Number: A0639864A

PATIENT
  Age: 64 Year
  Sex: Female

DRUGS (1)
  1. COMMIT [Suspect]
     Dates: start: 20070211, end: 20070213

REACTIONS (3)
  - HYPERSENSITIVITY [None]
  - INTENTIONAL DRUG MISUSE [None]
  - THROAT TIGHTNESS [None]
